FAERS Safety Report 4795908-1 (Version None)
Quarter: 2005Q4

REPORT INFORMATION
  Report Type: 
  Country: None (occurrence: None)
  Receive Date: 20051012
  Receipt Date: 20050707
  Transmission Date: 20060501
  Serious: Yes (Hospitalization)
  Sender: FDA-Public Use
  Company Number: CA-MERCK-0507CAN00050

PATIENT
  Age: 57 Year
  Sex: Male

DRUGS (1)
  1. PROSCAR [Suspect]
     Indication: BENIGN PROSTATIC HYPERPLASIA
     Route: 048
     Dates: start: 20040721

REACTIONS (6)
  - DYSURIA [None]
  - EPIDIDYMITIS [None]
  - HERNIA [None]
  - HERNIA REPAIR [None]
  - POLLAKIURIA [None]
  - URINARY RETENTION [None]
